FAERS Safety Report 14288119 (Version 1)
Quarter: 2017Q4

REPORT INFORMATION
  Report Type: Report from Study
  Country: US (occurrence: US)
  Receive Date: 20171214
  Receipt Date: 20171214
  Transmission Date: 20180321
  Serious: Yes (Other)
  Sender: FDA-Public Use
  Company Number: US-ASTRAZENECA-2017SE82196

PATIENT
  Age: 646 Month
  Sex: Female
  Weight: 58.1 kg

DRUGS (9)
  1. LYNPARZA [Suspect]
     Active Substance: OLAPARIB
     Indication: PANCREATIC CARCINOMA
     Route: 048
     Dates: start: 20171014, end: 20171115
  2. ZOFRAN [Concomitant]
     Active Substance: ONDANSETRON HYDROCHLORIDE
     Indication: NAUSEA
     Dates: start: 201603
  3. DEXILANT [Concomitant]
     Active Substance: DEXLANSOPRAZOLE
     Indication: GASTROOESOPHAGEAL REFLUX DISEASE
     Dates: start: 201703
  4. ATIVAN [Concomitant]
     Active Substance: LORAZEPAM
     Indication: ANXIETY
     Dosage: 0.5MG AS REQUIRED
     Dates: start: 201603
  5. LYNPARZA [Suspect]
     Active Substance: OLAPARIB
     Indication: PANCREATIC CARCINOMA
     Route: 048
     Dates: start: 201701, end: 20170920
  6. ARIMIDEX [Suspect]
     Active Substance: ANASTROZOLE
     Dosage: 1 MG GENERIC
     Route: 065
     Dates: start: 2002, end: 2012
  7. TAMOXIFEN [Suspect]
     Active Substance: TAMOXIFEN
     Indication: BREAST CANCER FEMALE
     Dosage: DAILY
     Route: 048
     Dates: start: 2000, end: 2001
  8. LYNPARZA [Suspect]
     Active Substance: OLAPARIB
     Indication: PANCREATIC CARCINOMA
     Dosage: 500 MG DAILY, (ONE 150 MG AND 100 MG TWO TIMES DAILY)
     Route: 048
     Dates: start: 20170921, end: 20171014
  9. CELEBREX [Concomitant]
     Active Substance: CELECOXIB
     Indication: ARTHRALGIA
     Route: 048
     Dates: start: 2011, end: 2012

REACTIONS (30)
  - Pain [Not Recovered/Not Resolved]
  - Lung infiltration [Unknown]
  - Cough [Recovered/Resolved]
  - Trichiasis [Recovered/Resolved]
  - White blood cell count decreased [Not Recovered/Not Resolved]
  - Nausea [Not Recovered/Not Resolved]
  - Fatigue [Unknown]
  - Pyrexia [Recovered/Resolved]
  - Urinary tract infection [Recovered/Resolved]
  - Lacrimation increased [Unknown]
  - Off label use [Unknown]
  - Triple negative breast cancer [Unknown]
  - Pancreatic carcinoma [Unknown]
  - Body height decreased [Unknown]
  - Dyspnoea [Recovered/Resolved]
  - Arthralgia [Recovered/Resolved]
  - Pulmonary mass [Unknown]
  - Dacryostenosis acquired [Unknown]
  - Hypotension [Recovered/Resolved]
  - Vomiting [Recovering/Resolving]
  - Hyperhidrosis [Recovered/Resolved]
  - Product use in unapproved indication [Unknown]
  - Haemoglobin decreased [Unknown]
  - Metastases to liver [Unknown]
  - Platelet count decreased [Not Recovered/Not Resolved]
  - Uterine haemorrhage [Unknown]
  - Chills [Recovered/Resolved]
  - Alopecia [Recovered/Resolved]
  - Visual impairment [Unknown]
  - Decreased activity [Not Recovered/Not Resolved]

NARRATIVE: CASE EVENT DATE: 201007
